FAERS Safety Report 22226938 (Version 6)
Quarter: 2024Q3

REPORT INFORMATION
  Report Type: Report from Study
  Country: DE (occurrence: DE)
  Receive Date: 20230419
  Receipt Date: 20240807
  Transmission Date: 20241017
  Serious: No
  Sender: ROCHE
  Company Number: DE-ROCHE-2423546

PATIENT
  Age: 50 Year
  Sex: Female

DRUGS (11)
  1. OCREVUS [Suspect]
     Active Substance: OCRELIZUMAB
     Indication: Relapsing-remitting multiple sclerosis
     Route: 042
     Dates: start: 20190924
  2. OCREVUS [Suspect]
     Active Substance: OCRELIZUMAB
     Route: 042
     Dates: start: 20191008
  3. OCREVUS [Suspect]
     Active Substance: OCRELIZUMAB
     Dosage: THIRD INFUSION
     Route: 042
     Dates: start: 20201012
  4. OCREVUS [Suspect]
     Active Substance: OCRELIZUMAB
     Dosage: FOURTH INFUSION
     Route: 042
     Dates: start: 20210615
  5. BUPRENORPHINE [Concomitant]
     Active Substance: BUPRENORPHINE
  6. LYRICA [Concomitant]
     Active Substance: PREGABALIN
  7. LYRICA [Concomitant]
     Active Substance: PREGABALIN
     Dosage: 6 1 DAYS 3-0-3
  8. CORTISONE [Concomitant]
     Active Substance: CORTISONE
     Dates: start: 201906
  9. DESOGESTREL [Concomitant]
     Active Substance: DESOGESTREL
     Dates: end: 202007
  10. PANTOPRAZOLE [Concomitant]
     Active Substance: PANTOPRAZOLE
  11. CHOLECALCIFEROL [Concomitant]
     Active Substance: CHOLECALCIFEROL

REACTIONS (28)
  - Headache [Recovered/Resolved]
  - Fatigue [Recovered/Resolved]
  - Arthralgia [Recovered/Resolved]
  - Hypoaesthesia [Not Recovered/Not Resolved]
  - Nasopharyngitis [Recovered/Resolved]
  - Bacterial vulvovaginitis [Recovered/Resolved]
  - Cystitis noninfective [Recovered/Resolved]
  - Menstrual disorder [Recovered/Resolved]
  - Spinal pain [Recovered/Resolved]
  - Vaginal haemorrhage [Recovered/Resolved]
  - Menopause [Not Recovered/Not Resolved]
  - Fibroadenoma of breast [Not Recovered/Not Resolved]
  - Facial pain [Recovered/Resolved]
  - Vaginal infection [Recovered/Resolved]
  - Thyroid mass [Not Recovered/Not Resolved]
  - Hypothyroidism [Recovered/Resolved]
  - Vaccination failure [Unknown]
  - Asthenia [Recovered/Resolved]
  - Nerve compression [Recovered/Resolved]
  - Nausea [Recovered/Resolved]
  - Diarrhoea [Recovered/Resolved]
  - Gastritis [Recovered/Resolved]
  - Hypoaesthesia [Recovered/Resolved]
  - COVID-19 [Not Recovered/Not Resolved]
  - Laryngitis [Recovered/Resolved]
  - Aphonia [Recovering/Resolving]
  - Neck pain [Recovering/Resolving]
  - Bone disorder [Not Recovered/Not Resolved]

NARRATIVE: CASE EVENT DATE: 20190924
